FAERS Safety Report 10621469 (Version 1)
Quarter: 2014Q4

REPORT INFORMATION
  Report Type: Spontaneous
  Country: US (occurrence: None)
  Receive Date: 20141126
  Receipt Date: 20141126
  Transmission Date: 20150529
  Serious: Yes (Hospitalization)
  Sender: FDA-Public Use
  Company Number: None

PATIENT
  Age: 69 Year
  Sex: Male
  Weight: 83.4 kg

DRUGS (1)
  1. BEVACIZUMAB [Suspect]
     Active Substance: BEVACIZUMAB
     Dates: start: 20141105, end: 20141119

REACTIONS (7)
  - Fatigue [None]
  - Tachycardia [None]
  - Atelectasis [None]
  - Hypoxia [None]
  - Somnolence [None]
  - Hypophagia [None]
  - Fluid intake reduced [None]

NARRATIVE: CASE EVENT DATE: 20141119
